FAERS Safety Report 5117846-7 (Version None)
Quarter: 2006Q3

REPORT INFORMATION
  Report Type: 
  Country: None (occurrence: None)
  Receive Date: 20060929
  Receipt Date: 20060213
  Transmission Date: 20061208
  Serious: Yes (Hospitalization)
  Sender: FDA-Public Use
  Company Number: US-SANOFI-SYNTHELABO-A03200600863

PATIENT
  Sex: Female

DRUGS (2)
  1. AMBIEN [Suspect]
     Indication: DRUG USE FOR UNKNOWN INDICATION
     Dosage: UNK
     Route: 048
     Dates: start: 20050120
  2. VICODIN [Concomitant]
     Dosage: 2 TO 3 TIMES A DAY
     Route: 048

REACTIONS (13)
  - ABNORMAL BEHAVIOUR [None]
  - AGGRESSION [None]
  - AMNESIA [None]
  - CYANOSIS [None]
  - DECREASED INTEREST [None]
  - DEPRESSION [None]
  - DISSOCIATIVE DISORDER [None]
  - IMPAIRED DRIVING ABILITY [None]
  - NERVOUSNESS [None]
  - PSYCHIATRIC SYMPTOM [None]
  - RESTLESSNESS [None]
  - STRESS [None]
  - SUICIDAL IDEATION [None]
